FAERS Safety Report 8974220 (Version 1)
Quarter: 2012Q4

REPORT INFORMATION
  Report Type: Spontaneous
  Country: GB (occurrence: None)
  Receive Date: 20121211
  Receipt Date: 20121211
  Transmission Date: 20130627
  Serious: Yes (Other)
  Sender: FDA-Public Use
  Company Number: 2012-004317

PATIENT

DRUGS (1)
  1. ASACOL [Suspect]

REACTIONS (2)
  - Endocarditis [None]
  - Rectal fissure [None]
